FAERS Safety Report 18862168 (Version 1)
Quarter: 2021Q1

REPORT INFORMATION
  Report Type: Spontaneous
  Country: CN (occurrence: CN)
  Receive Date: 20210208
  Receipt Date: 20210208
  Transmission Date: 20210420
  Serious: Yes (Other)
  Sender: FDA-Public Use
  Company Number: CN-BAYER-2021-050546

PATIENT
  Age: 70 Year
  Sex: Male

DRUGS (2)
  1. AVELOX [Suspect]
     Active Substance: MOXIFLOXACIN HYDROCHLORIDE
     Indication: HAEMODIALYSIS
     Dosage: 0.4 G, QD
     Route: 048
     Dates: start: 20201116, end: 20201224
  2. SULPERAZONE [Suspect]
     Active Substance: CEFOPERAZONE SODIUM\SULBACTAM SODIUM
     Indication: HAEMODIALYSIS
     Dosage: 1 G, BID
     Route: 041
     Dates: start: 20201116, end: 20201223

REACTIONS (4)
  - Hallucination [Recovering/Resolving]
  - Encephalopathy [Recovering/Resolving]
  - Off label use [None]
  - Product use in unapproved indication [None]

NARRATIVE: CASE EVENT DATE: 20201116
